FAERS Safety Report 8523844-3 (Version None)
Quarter: 2012Q3

REPORT INFORMATION
  Report Type: 
  Country: None (occurrence: None)
  Receive Date: 20120720
  Receipt Date: 20120712
  Transmission Date: 20120928
  Serious: Yes (Hospitalization)
  Sender: FDA-Public Use
  Company Number: US-BAYER-201023058NA

PATIENT
  Age: 16 Year
  Sex: Female
  Weight: 56.689 kg

DRUGS (30)
  1. MS CONTIN [Concomitant]
  2. FENTANYL [Concomitant]
     Route: 041
  3. TEMAZEPAM [Concomitant]
  4. ALBUTEROL [Concomitant]
     Indication: ASTHMA
     Dosage: UNK UNK, PRN
     Route: 055
  5. ZOLOFT [Concomitant]
  6. ANTIBIOTICS [Concomitant]
     Dosage: UNK UNK, PRN
  7. ALBUTEROL [Concomitant]
     Dosage: 2 PUFF(S), PRN
     Route: 055
     Dates: start: 20071111
  8. NSAID'S [Concomitant]
     Dosage: UNK UNK, PRN
  9. TRAZODONE HYDROCHLORIDE [Concomitant]
  10. LOVENOX [Concomitant]
     Dosage: UNK
  11. PROZAC [Concomitant]
     Dosage: 10 MG, QD
  12. ANTIMIGRAINE PREPARATIONS [Concomitant]
     Indication: MIGRAINE
     Dosage: UNK UNK, PRN
  13. ASPIRIN [Concomitant]
  14. ADVAIR DISKUS 100/50 [Concomitant]
  15. OXYCONTIN [Concomitant]
  16. ACETAMINOPHEN [Concomitant]
  17. YAZ [Suspect]
     Indication: PRODUCT USED FOR UNKNOWN INDICATION
     Route: 048
     Dates: start: 20050401, end: 20070215
  18. MECLIZINE [Concomitant]
  19. LORAZEPAM [Concomitant]
  20. RESTORIL [Concomitant]
  21. ATIVAN [Concomitant]
     Dosage: 0.5 MG, UNK
     Route: 048
  22. YASMIN [Suspect]
     Indication: MENSTRUAL DISORDER
  23. ZOFRAN [Concomitant]
     Dosage: 4 MG, UNK
     Route: 041
  24. MORPHINE SULFATE [Concomitant]
     Dosage: 4 MG, UNK
     Route: 041
  25. DROPERIDOL [Concomitant]
     Route: 041
  26. PHENERGAN HCL [Concomitant]
  27. PERCOCET [Concomitant]
  28. TYLENOL W/ CODEINE [Concomitant]
  29. YASMIN [Suspect]
     Indication: ACNE
     Dosage: UNK
     Dates: start: 20050401, end: 20070216
  30. IBUPROFEN [Concomitant]

REACTIONS (3)
  - PULMONARY EMBOLISM [None]
  - PAIN [None]
  - DEEP VEIN THROMBOSIS [None]
